FAERS Safety Report 18528243 (Version 2)
Quarter: 2020Q4

REPORT INFORMATION
  Report Type: Report from Study
  Country: IT (occurrence: IT)
  Receive Date: 20201120
  Receipt Date: 20201125
  Transmission Date: 20210114
  Serious: Yes (Hospitalization)
  Sender: FDA-Public Use
  Company Number: IT-PFIZER INC-2020454523

PATIENT
  Age: 45 Year
  Sex: Female
  Weight: 54 kg

DRUGS (2)
  1. AXITINIB [Suspect]
     Active Substance: AXITINIB
     Dosage: UNK, 1X/DAY
     Dates: start: 20201106, end: 20201109
  2. AVELUMAB [Suspect]
     Active Substance: AVELUMAB
     Dosage: 1200 MG, CYCLIC (Q2W)
     Route: 042
     Dates: start: 20201106

REACTIONS (1)
  - Haematemesis [Not Recovered/Not Resolved]

NARRATIVE: CASE EVENT DATE: 20201110
